FAERS Safety Report 17779436 (Version 1)
Quarter: 2020Q2

REPORT INFORMATION
  Report Type: Spontaneous
  Country: NL (occurrence: NL)
  Receive Date: 20200513
  Receipt Date: 20200513
  Transmission Date: 20200714
  Serious: Yes (Other)
  Sender: FDA-Public Use
  Company Number: NL-ALLERGAN-2019104US

PATIENT
  Sex: Male

DRUGS (6)
  1. AMOXICILLINE [Concomitant]
     Active Substance: AMOXICILLIN
  2. FOSFOMYCIN TROMETHAMINE - BP [Suspect]
     Active Substance: FOSFOMYCIN TROMETHAMINE
     Indication: CYSTITIS
     Dosage: 1-3 SACHETS
     Route: 065
     Dates: start: 201710, end: 20190801
  3. FERROFUMARAAT [Concomitant]
  4. ACENOCOUMAROL [Concomitant]
     Active Substance: ACENOCOUMAROL
  5. BISOPROLOL [Concomitant]
     Active Substance: BISOPROLOL
  6. OMEPRAZOL [Concomitant]
     Active Substance: OMEPRAZOLE
     Dosage: 20 MG

REACTIONS (7)
  - Product use issue [Unknown]
  - Haemoglobin decreased [Recovering/Resolving]
  - Syncope [Unknown]
  - Pruritus [Not Recovered/Not Resolved]
  - Diarrhoea haemorrhagic [Unknown]
  - Tremor [Not Recovered/Not Resolved]
  - Dental caries [Unknown]

NARRATIVE: CASE EVENT DATE: 201809
